FAERS Safety Report 25388526 (Version 3)
Quarter: 2025Q4

REPORT INFORMATION
  Report Type: Report from Study
  Country: US (occurrence: US)
  Receive Date: 20250603
  Receipt Date: 20251013
  Transmission Date: 20260118
  Serious: Yes (Other)
  Sender: ROCHE
  Company Number: US-ROCHE-10000300592

PATIENT
  Age: 77 Year
  Sex: Female

DRUGS (8)
  1. ITOVEBI [Suspect]
     Active Substance: INAVOLISIB
     Indication: Metastases to bone
     Route: 048
  2. ITOVEBI [Suspect]
     Active Substance: INAVOLISIB
     Indication: Breast cancer female
  3. FULVESTRANT [Suspect]
     Active Substance: FULVESTRANT
     Indication: Metastases to bone
     Route: 065
  4. FULVESTRANT [Suspect]
     Active Substance: FULVESTRANT
     Indication: Breast cancer female
  5. FASLODEX [Suspect]
     Active Substance: FULVESTRANT
     Indication: Metastases to bone
     Route: 065
  6. FASLODEX [Suspect]
     Active Substance: FULVESTRANT
     Indication: Breast cancer female
  7. IBRANCE [Suspect]
     Active Substance: PALBOCICLIB
     Indication: Metastases to bone
     Dosage: FOR 21 DAYS
     Route: 048
  8. IBRANCE [Suspect]
     Active Substance: PALBOCICLIB
     Indication: Breast cancer female

REACTIONS (5)
  - Lung neoplasm malignant [Unknown]
  - Gait disturbance [Unknown]
  - Insomnia [Unknown]
  - Muscle spasms [Unknown]
  - Muscle spasms [Unknown]
